FAERS Safety Report 16139683 (Version 2)
Quarter: 2019Q2

REPORT INFORMATION
  Report Type: Spontaneous
  Country: US (occurrence: US)
  Receive Date: 20190401
  Receipt Date: 20190404
  Transmission Date: 20190711
  Serious: No
  Sender: FDA-Public Use
  Company Number: US-ASTRAZENECA-2019SE35015

PATIENT
  Age: 10985 Day
  Sex: Female
  Weight: 61.1 kg

DRUGS (3)
  1. SYMBICORT [Suspect]
     Active Substance: BUDESONIDE\FORMOTEROL FUMARATE DIHYDRATE
     Dosage: TWO PUFFS, UNKNOWN UNKNOWN
     Route: 055
     Dates: start: 20180918
  2. SINGULAIR [Concomitant]
     Active Substance: MONTELUKAST SODIUM
  3. FASENRA [Suspect]
     Active Substance: BENRALIZUMAB
     Indication: ASTHMA
     Dosage: 30.0MG UNKNOWN
     Route: 058
     Dates: start: 20190126

REACTIONS (5)
  - Pain [Recovered/Resolved]
  - Respiratory tract irritation [Recovered/Resolved]
  - Pruritus generalised [Recovered/Resolved]
  - Myalgia [Recovered/Resolved]
  - Sensitive skin [Recovered/Resolved]

NARRATIVE: CASE EVENT DATE: 20190126
